FAERS Safety Report 8345467-1 (Version None)
Quarter: 2012Q2

REPORT INFORMATION
  Report Type: 
  Country: None (occurrence: None)
  Receive Date: 20120504
  Receipt Date: 20120419
  Transmission Date: 20120825
  Serious: Yes (Other)
  Sender: FDA-Public Use
  Company Number: AUR-APL-2012-01988

PATIENT
  Age: 16 Year
  Sex: Female
  Weight: 50 kg

DRUGS (5)
  1. LEVETIRACETAM [Suspect]
     Indication: STATUS EPILEPTICUS
  2. VALPROATE SODIUM [Suspect]
     Indication: STATUS EPILEPTICUS
  3. METHYLPREDNISOLONE [Suspect]
     Indication: PRODUCT USED FOR UNKNOWN INDICATION
  4. TOPIRAMATE [Suspect]
     Indication: PRODUCT USED FOR UNKNOWN INDICATION
  5. CLOBAZAM [Suspect]
     Indication: STATUS EPILEPTICUS

REACTIONS (3)
  - TONIC CONVULSION [None]
  - DRUG INEFFECTIVE [None]
  - STATUS EPILEPTICUS [None]
